FAERS Safety Report 16682272 (Version 2)
Quarter: 2019Q3

REPORT INFORMATION
  Report Type: Spontaneous
  Country: AU (occurrence: AU)
  Receive Date: 20190808
  Receipt Date: 20190815
  Transmission Date: 20191004
  Serious: Yes (Other)
  Sender: FDA-Public Use
  Company Number: AU-PFIZER INC-2019333655

PATIENT
  Age: 70 Year
  Sex: Female

DRUGS (1)
  1. DBL PETHIDINE HYDROCHLORIDE [Suspect]
     Active Substance: MEPERIDINE HYDROCHLORIDE
     Indication: MIGRAINE
     Dosage: 4 DF, WEEKLY (4 AMPOULES A WEEK)

REACTIONS (2)
  - Pre-existing condition improved [Unknown]
  - Breast cancer metastatic [Unknown]

NARRATIVE: CASE EVENT DATE: 201804
